FAERS Safety Report 16661654 (Version 1)
Quarter: 2019Q3

REPORT INFORMATION
  Report Type: Report from Study
  Country: US (occurrence: US)
  Receive Date: 20190802
  Receipt Date: 20190802
  Transmission Date: 20191004
  Serious: Yes (Other)
  Sender: FDA-Public Use
  Company Number: US-THERAPEUTICSMD-2019TMD02113

PATIENT
  Sex: Female
  Weight: 61.22 kg

DRUGS (8)
  1. IMVEXXY [Suspect]
     Active Substance: ESTRADIOL
     Indication: URINARY TRACT DISORDER
  2. IMVEXXY [Suspect]
     Active Substance: ESTRADIOL
     Indication: ILL-DEFINED DISORDER
  3. MULTIVITAMIN [Concomitant]
     Active Substance: VITAMINS
     Dosage: UNK, 1X/DAY
  4. B12 SUPPLEMENT [Concomitant]
     Dosage: UNK, 1X/DAY
  5. IMVEXXY [Suspect]
     Active Substance: ESTRADIOL
     Indication: ATROPHIC VULVOVAGINITIS
  6. FLECAINIDE [Concomitant]
     Active Substance: FLECAINIDE
     Dosage: UNK, AS NEEDED
  7. IMVEXXY [Suspect]
     Active Substance: ESTRADIOL
     Indication: VAGINAL DISORDER
     Dosage: 10 ?G, 2X/WEEK AT BEDTIME PRIMARILY; ALSO USED DURING THE DAY TO SEE IF IT HELPED WITH INSOMNIA
     Route: 067
     Dates: start: 2019, end: 201907
  8. FISH OIL SUPPLEMENT [Concomitant]
     Active Substance: FISH OIL
     Dosage: UNK, 1X/DAY

REACTIONS (6)
  - Off label use [Recovered/Resolved]
  - Insomnia [Recovered/Resolved]
  - Palpitations [Recovered/Resolved]
  - Headache [Recovered/Resolved]
  - Breast tenderness [Recovered/Resolved]
  - Atrial fibrillation [Recovered/Resolved]

NARRATIVE: CASE EVENT DATE: 2019
